FAERS Safety Report 23267792 (Version 1)
Quarter: 2023Q4

REPORT INFORMATION
  Report Type: Spontaneous
  Country: US (occurrence: None)
  Receive Date: 20231205
  Receipt Date: 20231205
  Transmission Date: 20240110
  Serious: Yes (Hospitalization, Other)
  Sender: FDA-Public Use
  Company Number: None

PATIENT
  Sex: Female
  Weight: 45 kg

DRUGS (1)
  1. TYMLOS [Suspect]
     Active Substance: ABALOPARATIDE
     Indication: Osteoarthritis
     Dosage: FREQUENCY : DAILY;?
     Route: 058
     Dates: start: 20220401, end: 20230327

REACTIONS (3)
  - Dysphemia [None]
  - Cerebrovascular accident [None]
  - Cerebral calcification [None]
